FAERS Safety Report 8268240-1 (Version None)
Quarter: 2012Q2

REPORT INFORMATION
  Report Type: 
  Country: None (occurrence: None)
  Receive Date: 20120409
  Receipt Date: 20120327
  Transmission Date: 20120825
  Serious: Yes (Other)
  Sender: FDA-Public Use
  Company Number: CA-ROCHE-1054295

PATIENT
  Sex: Female
  Weight: 120.76 kg

DRUGS (8)
  1. ACTEMRA [Suspect]
     Dates: start: 20110112
  2. IRON [Concomitant]
  3. ACTEMRA [Suspect]
     Indication: RHEUMATOID ARTHRITIS
     Route: 042
     Dates: start: 20100907
  4. METHOTREXATE [Concomitant]
     Route: 058
  5. VITAMIN D [Concomitant]
  6. CODEINE [Concomitant]
  7. ACTEMRA [Suspect]
     Dates: start: 20101028
  8. FOLIC ACID [Concomitant]

REACTIONS (3)
  - ANAEMIA [None]
  - BRONCHITIS [None]
  - CHEST PAIN [None]
